FAERS Safety Report 6631116-7 (Version None)
Quarter: 2010Q1

REPORT INFORMATION
  Report Type: 
  Country: None (occurrence: None)
  Receive Date: 20100309
  Receipt Date: 20100222
  Transmission Date: 20100710
  Serious: Yes (Hospitalization)
  Sender: FDA-Public Use
  Company Number: NPIL/SEV/H/2010/05 DPC10-0012

PATIENT
  Age: 30 Year
  Sex: Male
  Weight: 93 kg

DRUGS (8)
  1. SEVOFLURANE [Suspect]
     Indication: FASCIOTOMY
     Dosage: 2.4% ONCE, INHALATION
     Route: 055
  2. ISOFLURANE [Suspect]
     Indication: DEBRIDEMENT
     Dosage: 2%, ONCE, INHALATION
     Route: 055
  3. MIDOZOLAM [Concomitant]
  4. FENTANYL [Concomitant]
  5. LIDOCAINE [Concomitant]
  6. PROPOFOL [Concomitant]
  7. ROCURONIUM BROMIDE [Concomitant]
  8. SUCCINYLCHOLINE CHLORIDE [Concomitant]

REACTIONS (3)
  - ANAESTHETIC COMPLICATION [None]
  - MUSCLE RIGIDITY [None]
  - PYREXIA [None]
